FAERS Safety Report 7681452-0 (Version None)
Quarter: 2011Q3

REPORT INFORMATION
  Report Type: 
  Country: None (occurrence: None)
  Receive Date: 20110812
  Receipt Date: 20110805
  Transmission Date: 20111222
  Serious: Yes (Other)
  Sender: FDA-Public Use
  Company Number: US-US-EMD SERONO, INC.-7075473

PATIENT
  Sex: Female
  Weight: 54 kg

DRUGS (2)
  1. EPITOL [Concomitant]
     Indication: CONVULSION
  2. REBIF [Suspect]
     Indication: MULTIPLE SCLEROSIS
     Route: 058
     Dates: start: 20101010

REACTIONS (3)
  - CARPAL TUNNEL SYNDROME [None]
  - INJECTION SITE HAEMATOMA [None]
  - ROTATOR CUFF REPAIR [None]
